FAERS Safety Report 17740654 (Version 3)
Quarter: 2020Q3

REPORT INFORMATION
  Report Type: Other
  Country: DE (occurrence: DE)
  Receive Date: 20200504
  Receipt Date: 20200902
  Transmission Date: 20201102
  Serious: Yes (Hospitalization)
  Sender: FDA-Public Use
  Company Number: DE-ROCHE-2590973

PATIENT
  Age: 44 Year
  Sex: Female
  Weight: 62 kg

DRUGS (25)
  1. URBASON [Suspect]
     Active Substance: METHYLPREDNISOLONE
     Route: 042
     Dates: start: 201907, end: 201907
  2. PREDNISOLON [Concomitant]
     Active Substance: PREDNISOLONE
     Route: 042
     Dates: start: 20190507, end: 20190507
  3. AERIUS [Concomitant]
     Route: 048
     Dates: start: 20180416, end: 20180418
  4. GABAPENTIN. [Concomitant]
     Active Substance: GABAPENTIN
     Indication: MUSCLE SPASTICITY
     Route: 048
     Dates: start: 201810, end: 201908
  5. AERIUS [Concomitant]
     Route: 048
     Dates: start: 20181031, end: 20181102
  6. URBASON [Suspect]
     Active Substance: METHYLPREDNISOLONE
     Indication: MULTIPLE SCLEROSIS RELAPSE
     Dosage: INDICATION: FLARE UP
     Route: 042
     Dates: start: 20190218, end: 20190218
  7. GABAPENTIN. [Concomitant]
     Active Substance: GABAPENTIN
     Route: 048
     Dates: start: 20180410, end: 20180712
  8. PREDNISOLON [Concomitant]
     Active Substance: PREDNISOLONE
     Indication: PROPHYLAXIS
     Route: 042
     Dates: start: 20180502, end: 20180502
  9. PREDNISOLON [Concomitant]
     Active Substance: PREDNISOLONE
     Route: 042
     Dates: start: 20181101, end: 20181101
  10. RANITIDIN [Concomitant]
     Active Substance: RANITIDINE HYDROCHLORIDE
     Indication: PROPHYLAXIS
     Route: 048
     Dates: start: 20190506, end: 20190508
  11. PERENTEROL [Concomitant]
     Active Substance: SACCHAROMYCES CEREVISIAE
     Indication: DIARRHOEA
     Route: 048
     Dates: start: 20191125
  12. LISKANTIN [Concomitant]
     Active Substance: PRIMIDONE
     Indication: TREMOR
     Route: 048
     Dates: start: 20191125
  13. OCRELIZUMAB. [Suspect]
     Active Substance: OCRELIZUMAB
     Route: 042
     Dates: start: 20180417, end: 20180502
  14. RANITIDIN [Concomitant]
     Active Substance: RANITIDINE HYDROCHLORIDE
     Route: 048
     Dates: start: 20180501, end: 20180503
  15. RANITIDIN [Concomitant]
     Active Substance: RANITIDINE HYDROCHLORIDE
     Route: 048
     Dates: start: 20180416, end: 20180418
  16. AERIUS [Concomitant]
     Indication: PROPHYLAXIS
     Route: 048
     Dates: start: 20180501, end: 20180503
  17. AERIUS [Concomitant]
     Route: 048
     Dates: start: 20190506, end: 20190508
  18. METHYLPREDNISOLON [Concomitant]
     Active Substance: METHYLPREDNISOLONE
     Dosage: INDICATION: FLARE UP
     Route: 042
     Dates: start: 20180525, end: 20180527
  19. RANITIDIN [Concomitant]
     Active Substance: RANITIDINE HYDROCHLORIDE
     Route: 048
     Dates: start: 20181031, end: 20181102
  20. GABAPENTIN. [Concomitant]
     Active Substance: GABAPENTIN
     Indication: TREMOR
     Route: 048
     Dates: start: 201908
  21. DEKRISTOL [Concomitant]
     Active Substance: CHOLECALCIFEROL
     Indication: VITAMIN D DEFICIENCY
     Route: 048
     Dates: start: 20181025
  22. OCRELIZUMAB. [Suspect]
     Active Substance: OCRELIZUMAB
     Indication: RELAPSING MULTIPLE SCLEROSIS
     Route: 042
     Dates: start: 20181101
  23. GABAPENTIN. [Concomitant]
     Active Substance: GABAPENTIN
     Route: 048
     Dates: start: 20180712, end: 201810
  24. FAMPYRA [Concomitant]
     Active Substance: DALFAMPRIDINE
     Indication: TREMOR
     Route: 048
     Dates: start: 20181025, end: 20181115
  25. PREDNISOLUT [Concomitant]
     Active Substance: PREDNISOLONE
     Indication: PROPHYLAXIS
     Route: 042
     Dates: start: 20180417, end: 20180417

REACTIONS (3)
  - Diarrhoea [Unknown]
  - Multiple sclerosis relapse [Unknown]
  - Drug hypersensitivity [Recovered/Resolved]

NARRATIVE: CASE EVENT DATE: 20190218
